FAERS Safety Report 5376859-0 (Version None)
Quarter: 2007Q3

REPORT INFORMATION
  Report Type: 
  Country: None (occurrence: None)
  Receive Date: 20070703
  Receipt Date: 20070627
  Transmission Date: 20080115
  Serious: Yes (Hospitalization)
  Sender: FDA-Public Use
  Company Number: US-ASTRAZENECA-2007UW15255

PATIENT
  Age: 78 Year
  Sex: Female

DRUGS (9)
  1. NEXIUM [Suspect]
     Indication: GASTROOESOPHAGEAL REFLUX DISEASE
     Route: 048
  2. NEXIUM [Suspect]
     Indication: GASTRIC DISORDER
     Route: 048
  3. COUMADIN [Concomitant]
  4. LISINOPRIL [Concomitant]
  5. LIPITOR [Concomitant]
  6. PAROXETINE [Concomitant]
  7. TOPROL-XL [Concomitant]
     Route: 048
  8. VITAMIN [Concomitant]
  9. XANAX [Concomitant]

REACTIONS (4)
  - ABDOMINAL PAIN UPPER [None]
  - DIARRHOEA [None]
  - DRUG INEFFECTIVE [None]
  - GASTRIC DISORDER [None]
